FAERS Safety Report 19395915 (Version 1)
Quarter: 2021Q2

REPORT INFORMATION
  Report Type: Spontaneous
  Country: US (occurrence: US)
  Receive Date: 20210609
  Receipt Date: 20210609
  Transmission Date: 20210717
  Serious: Yes (Other)
  Sender: FDA-Public Use
  Company Number: NVSC2021US129394

PATIENT
  Age: 68 Year
  Sex: Female

DRUGS (2)
  1. RANITIDINE. [Suspect]
     Active Substance: RANITIDINE
     Indication: GASTROOESOPHAGEAL REFLUX DISEASE
     Dosage: 300 MG, QW
     Route: 065
     Dates: start: 200201, end: 202004
  2. RANITIDINE. [Suspect]
     Active Substance: RANITIDINE
     Indication: GASTROOESOPHAGEAL REFLUX DISEASE
     Dosage: 300 MG, QW
     Route: 065
     Dates: start: 200201, end: 202004

REACTIONS (3)
  - Hepatic cancer [Unknown]
  - Colorectal cancer [Unknown]
  - Inappropriate schedule of product administration [Unknown]

NARRATIVE: CASE EVENT DATE: 20200101
